FAERS Safety Report 5646863-3 (Version None)
Quarter: 2008Q1

REPORT INFORMATION
  Report Type: 
  Country: None (occurrence: None)
  Receive Date: 20080229
  Receipt Date: 20080229
  Transmission Date: 20080703
  Serious: No
  Sender: FDA-Public Use
  Company Number: None

PATIENT
  Sex: Female
  Weight: 49.8957 kg

DRUGS (3)
  1. QUINAPRIL HCL [Suspect]
     Indication: HYPERTENSION
     Dosage: 10MG QD PO
     Route: 048
     Dates: start: 20030425
  2. AMILORIDE HCL AND HYDROCHLOROTHIAZIDE [Concomitant]
  3. BRAND NAME ACCUPRIL [Concomitant]

REACTIONS (1)
  - HEADACHE [None]
